FAERS Safety Report 8022723 (Version 6)
Quarter: 2012Q4

REPORT INFORMATION
  Report Type: 
  Country: US (occurrence: US)
  Receive Date: 20110706
  Receipt Date: 20121110
  Transmission Date: 20130627
  Serious: Yes (Other)
  Sender: FDA-Public Use
  Company Number: US-US-EMD SERONO, INC.-7067953

PATIENT
  Sex: Male
  Weight: 64 kg

DRUGS (5)
  1. REBIF [Suspect]
     Indication: MULTIPLE SCLEROSIS
     Route: 058
     Dates: start: 20070306
  2. REBIF [Suspect]
     Dates: start: 201210
  3. SYNTHROID [Concomitant]
     Indication: HYPOTHYROIDISM
  4. TYLENOL [Concomitant]
     Indication: PRODUCT USED FOR UNKNOWN INDICATION
  5. ADVIL [Concomitant]
     Indication: PRODUCT USED FOR UNKNOWN INDICATION

REACTIONS (8)
  - Bipolar disorder [Recovering/Resolving]
  - Hepatotoxicity [Recovered/Resolved]
  - Weight decreased [Unknown]
  - Depression [Unknown]
  - Fatigue [Recovering/Resolving]
  - Hypothyroidism [Not Recovered/Not Resolved]
  - Injection site reaction [Unknown]
  - Inappropriate schedule of drug administration [Unknown]
